FAERS Safety Report 6384428-9 (Version None)
Quarter: 2009Q4

REPORT INFORMATION
  Report Type: 
  Country: None (occurrence: None)
  Receive Date: 20091001
  Receipt Date: 20090916
  Transmission Date: 20100525
  Serious: Yes (Hospitalization)
  Sender: FDA-Public Use
  Company Number: FR-PFIZER INC-2009269413

PATIENT
  Age: 82 Year

DRUGS (12)
  1. ZYVOXID [Suspect]
     Dosage: UNK
     Dates: start: 20090722, end: 20090724
  2. TAZOCILLINE [Suspect]
     Dosage: UNK
     Dates: start: 20090722, end: 20090724
  3. AMLOR [Concomitant]
  4. FOZITEC [Concomitant]
  5. CARDENSIEL [Concomitant]
  6. LASILIX [Concomitant]
  7. KARDEGIC [Concomitant]
  8. INIPOMP [Concomitant]
  9. ALLOPURINOL [Concomitant]
  10. LEVOTHYROXINE SODIUM [Concomitant]
  11. FOLIC ACID [Concomitant]
  12. STILNOX [Concomitant]

REACTIONS (1)
  - ACUTE GENERALISED EXANTHEMATOUS PUSTULOSIS [None]
